FAERS Safety Report 21308644 (Version 1)
Quarter: 2022Q3

REPORT INFORMATION
  Report Type: Spontaneous
  Country: US (occurrence: US)
  Receive Date: 20220908
  Receipt Date: 20220908
  Transmission Date: 20221026
  Serious: No
  Sender: FDA-Public Use
  Company Number: US-PFIZER INC-PV202200057737

PATIENT
  Age: 35 Year
  Sex: Female

DRUGS (1)
  1. SPIRONOLACTONE [Suspect]
     Active Substance: SPIRONOLACTONE
     Dosage: UNK

REACTIONS (5)
  - Dehydration [Unknown]
  - Dry mouth [Unknown]
  - Pollakiuria [Unknown]
  - Headache [Unknown]
  - Chapped lips [Unknown]
